FAERS Safety Report 7758566-X (Version None)
Quarter: 2011Q3

REPORT INFORMATION
  Report Type: 
  Country: None (occurrence: None)
  Receive Date: 20110919
  Receipt Date: 20110905
  Transmission Date: 20111222
  Serious: Yes (Hospitalization)
  Sender: FDA-Public Use
  Company Number: DE-ELI_LILLY_AND_COMPANY-DE201108003156

PATIENT
  Age: 17 Year
  Sex: Male

DRUGS (2)
  1. FLUOXETINE [Suspect]
     Indication: DISTURBANCE IN SOCIAL BEHAVIOUR
     Dosage: 20 MG, UNK
     Route: 048
  2. ALCOHOL [Concomitant]

REACTIONS (3)
  - LOSS OF CONSCIOUSNESS [None]
  - ALCOHOL POISONING [None]
  - MUSCLE CONTRACTIONS INVOLUNTARY [None]
